FAERS Safety Report 5650709-7 (Version None)
Quarter: 2008Q1

REPORT INFORMATION
  Report Type: 
  Country: None (occurrence: None)
  Receive Date: 20080305
  Receipt Date: 20080222
  Transmission Date: 20080703
  Serious: Yes (Hospitalization, Other)
  Sender: FDA-Public Use
  Company Number: US-AMGEN-US261864

PATIENT
  Sex: Female

DRUGS (3)
  1. ENBREL [Suspect]
     Indication: RHEUMATOID ARTHRITIS
     Route: 058
     Dates: start: 20071011
  2. PLAQUENIL [Concomitant]
     Route: 065
  3. ARAVA [Concomitant]
     Route: 065

REACTIONS (9)
  - ARTHRALGIA [None]
  - DYSPHONIA [None]
  - GASTRITIS [None]
  - HYPOAESTHESIA [None]
  - INJECTION SITE PRURITUS [None]
  - INJECTION SITE RASH [None]
  - NASOPHARYNGITIS [None]
  - PARAESTHESIA [None]
  - SINUS HEADACHE [None]
